FAERS Safety Report 9830028 (Version 1)
Quarter: 2014Q1

REPORT INFORMATION
  Report Type: Spontaneous
  Country: US (occurrence: US)
  Receive Date: 20140120
  Receipt Date: 20140120
  Transmission Date: 20141002
  Serious: No
  Sender: FDA-Public Use
  Company Number: US-ROXANE LABORATORIES, INC.-2014-RO-00074RO

PATIENT
  Age: 56 Year
  Sex: Male

DRUGS (4)
  1. BUPRENORPHINE HYDROCHLORIDE [Suspect]
     Indication: PAIN
     Dosage: 24 MG
     Route: 060
  2. KLOR-CON [Concomitant]
  3. ADVIL [Concomitant]
  4. DIURETICS [Concomitant]

REACTIONS (2)
  - Melaena [Not Recovered/Not Resolved]
  - Haematochezia [Not Recovered/Not Resolved]
